FAERS Safety Report 5944182-9 (Version None)
Quarter: 2008Q4

REPORT INFORMATION
  Report Type: 
  Country: None (occurrence: None)
  Receive Date: 20081021
  Receipt Date: 20071226
  Transmission Date: 20090506
  Serious: Yes (Hospitalization, Other)
  Sender: FDA-Public Use
  Company Number: HQWYE254620JUL04

PATIENT
  Age: 59 Year
  Sex: Female

DRUGS (15)
  1. PREMARIN [Suspect]
     Indication: OESTROGEN REPLACEMENT THERAPY
  2. PREMPRO [Suspect]
     Indication: HORMONE REPLACEMENT THERAPY
  3. PROVERA [Suspect]
     Indication: DRUG USE FOR UNKNOWN INDICATION
  4. WELLBUTRIN [Concomitant]
  5. LOTENSIN [Concomitant]
  6. SYNTHROID [Concomitant]
  7. PREVACID [Concomitant]
  8. MULTI-VITAMINS [Concomitant]
  9. ALBUTEROL [Concomitant]
  10. ATROVENT [Concomitant]
  11. IRON (IRON) [Concomitant]
  12. NADOLOL [Concomitant]
  13. CLARITIN [Concomitant]
  14. RELAFEN [Concomitant]
  15. LIPITOR [Concomitant]

REACTIONS (1)
  - BREAST CANCER [None]
